FAERS Safety Report 24615091 (Version 3)
Quarter: 2025Q4

REPORT INFORMATION
  Report Type: Spontaneous
  Country: US (occurrence: US)
  Receive Date: 20241113
  Receipt Date: 20251224
  Transmission Date: 20260118
  Serious: No
  Sender: LUNDBECK
  Company Number: US-LUNDBECK-DKLU4005610

PATIENT
  Age: 74 Year
  Sex: Female
  Weight: 74.843 kg

DRUGS (1)
  1. VYEPTI [Suspect]
     Active Substance: EPTINEZUMAB-JJMR
     Indication: Product used for unknown indication
     Dosage: 300 MILLIGRAM
     Route: 041
     Dates: start: 20240923

REACTIONS (5)
  - Presyncope [Recovered/Resolved]
  - Retching [Recovered/Resolved]
  - Vomiting [Recovered/Resolved]
  - Nausea [Recovered/Resolved]
  - Dizziness [Recovered/Resolved]

NARRATIVE: CASE EVENT DATE: 20240923
